FAERS Safety Report 5066446-6 (Version None)
Quarter: 2006Q3

REPORT INFORMATION
  Report Type: 
  Country: None (occurrence: None)
  Receive Date: 20060801
  Receipt Date: 20050322
  Transmission Date: 20061208
  Serious: Yes (Hospitalization, Other)
  Sender: FDA-Public Use
  Company Number: JP-AVENTIS-200510894JP

PATIENT
  Age: 18 Year
  Sex: Male
  Weight: 57 kg

DRUGS (9)
  1. KETEK [Suspect]
     Indication: PNEUMONIA
     Route: 048
     Dates: start: 20050311, end: 20050315
  2. DENOSINE ^FAREAST^ [Concomitant]
     Route: 041
     Dates: start: 20050310, end: 20050315
  3. DENOSINE ^FAREAST^ [Concomitant]
     Route: 041
     Dates: start: 20050318, end: 20050322
  4. MODACIN [Concomitant]
     Route: 041
     Dates: start: 20050310, end: 20050322
  5. DIFLUCAN [Concomitant]
     Route: 041
  6. PRODIF [Concomitant]
     Route: 041
     Dates: start: 20050310, end: 20050322
  7. URSO [Concomitant]
     Route: 048
  8. BAKTAR [Concomitant]
     Dosage: DOSE: 2 TABLETS
     Route: 048
     Dates: end: 20050323
  9. SULPERAZON [Concomitant]
     Route: 041
     Dates: start: 20050322, end: 20050324

REACTIONS (6)
  - ALANINE AMINOTRANSFERASE INCREASED [None]
  - ASCITES [None]
  - ASPARTATE AMINOTRANSFERASE INCREASED [None]
  - BLOOD ALKALINE PHOSPHATASE INCREASED [None]
  - BLOOD BILIRUBIN INCREASED [None]
  - HEPATIC FUNCTION ABNORMAL [None]
